FAERS Safety Report 5015091-7 (Version None)
Quarter: 2006Q2

REPORT INFORMATION
  Report Type: 
  Country: None (occurrence: None)
  Receive Date: 20060426
  Receipt Date: 20060124
  Transmission Date: 20061013
  Serious: No
  Sender: FDA-Public Use
  Company Number: 220597

PATIENT
  Age: 62 Year
  Sex: Male
  Weight: 93.9 kg

DRUGS (4)
  1. XOLAIR [Suspect]
     Indication: ASTHMA
     Dosage: 300 MG, Q2W, SUBCUTANEOUS
     Route: 058
     Dates: start: 20051115, end: 20051212
  2. THEOPHYLLINE [Concomitant]
  3. FLOVENT [Concomitant]
  4. SEREVENT [Concomitant]

REACTIONS (1)
  - PAIN IN EXTREMITY [None]
